FAERS Safety Report 10207832 (Version 1)
Quarter: 2014Q2

REPORT INFORMATION
  Report Type: Spontaneous
  Country: US (occurrence: US)
  Receive Date: 20140530
  Receipt Date: 20140530
  Transmission Date: 20141212
  Serious: No
  Sender: FDA-Public Use
  Company Number: US-GLAXOSMITHKLINE-A1061763A

PATIENT
  Age: 56 Year
  Sex: Male

DRUGS (2)
  1. VENTOLIN [Suspect]
     Indication: RESPIRATORY DISORDER
     Dosage: 90MCG UNKNOWN
     Route: 065
     Dates: start: 20130320
  2. ADVAIR HFA [Suspect]
     Indication: RESPIRATORY DISORDER
     Route: 065
     Dates: start: 20130320

REACTIONS (6)
  - Malaise [Unknown]
  - Nasal congestion [Unknown]
  - Pyrexia [Unknown]
  - Chills [Unknown]
  - Visual impairment [Unknown]
  - Influenza [Unknown]
